FAERS Safety Report 10170572 (Version 3)
Quarter: 2014Q2

REPORT INFORMATION
  Report Type: Report from Study
  Country: DE (occurrence: DE)
  Receive Date: 20140513
  Receipt Date: 20140528
  Transmission Date: 20141212
  Serious: Yes (Other)
  Sender: FDA-Public Use
  Company Number: PHHO2014DE006985

PATIENT
  Sex: 0

DRUGS (5)
  1. FTY 720 [Suspect]
     Indication: MULTIPLE SCLEROSIS
     Dosage: 0.5 MG, QD
     Route: 048
     Dates: start: 20110328, end: 20140505
  2. CALCIUM ^VERLA^ [Concomitant]
     Indication: PROPHYLAXIS
     Dosage: THRICE TIMES
     Route: 048
     Dates: start: 201012
  3. DOLORMIN [Concomitant]
     Indication: PROPHYLAXIS
     Dosage: PRN
     Route: 048
     Dates: start: 20091221
  4. BASICA [Concomitant]
     Indication: PROPHYLAXIS
     Dosage: 3X2 TID
     Route: 048
  5. PHYSIOTHERAPY [Concomitant]
     Indication: PROPHYLAXIS
     Dosage: 3XP.WEEK

REACTIONS (1)
  - Malignant melanoma [Recovered/Resolved]
